FAERS Safety Report 8339872-7 (Version None)
Quarter: 2012Q2

REPORT INFORMATION
  Report Type: 
  Country: None (occurrence: None)
  Receive Date: 20120507
  Receipt Date: 20120502
  Transmission Date: 20120825
  Serious: Yes (Disabling, Other)
  Sender: FDA-Public Use
  Company Number: US-PFIZER INC-2012108126

PATIENT
  Sex: Female
  Weight: 84 kg

DRUGS (1)
  1. CELEBREX [Suspect]
     Indication: OSTEOARTHRITIS
     Dosage: 50 MG, AS NEEDED

REACTIONS (4)
  - DRUG DOSE OMISSION [None]
  - PAIN [None]
  - FALL [None]
  - ABASIA [None]
